FAERS Safety Report 7618350-4 (Version None)
Quarter: 2011Q3

REPORT INFORMATION
  Report Type: 
  Country: None (occurrence: None)
  Receive Date: 20110718
  Receipt Date: 20110707
  Transmission Date: 20111222
  Serious: Yes (Hospitalization)
  Sender: FDA-Public Use
  Company Number: PHHY2011US60958

PATIENT
  Age: 72 Year
  Sex: Male

DRUGS (1)
  1. TOBI [Suspect]
     Dosage: 300 MG, TWICE A DAY FOR 2 WEEKS
     Dates: start: 20100811

REACTIONS (1)
  - PNEUMONIA [None]
